FAERS Safety Report 9407087 (Version 2)
Quarter: 2015Q1

REPORT INFORMATION
  Report Type: Spontaneous
  Country: US (occurrence: US)
  Receive Date: 20130718
  Receipt Date: 20150127
  Transmission Date: 20150721
  Serious: Yes (Death)
  Sender: FDA-Public Use
  Company Number: US-PFIZER INC-2013203760

PATIENT
  Age: 58 Year
  Sex: Female

DRUGS (6)
  1. VENLAFAXINE HCL [Suspect]
     Active Substance: VENLAFAXINE HYDROCHLORIDE
     Dosage: UNK
  2. CLONAZEPAM. [Concomitant]
     Active Substance: CLONAZEPAM
     Dosage: UNK
  3. PROPOXYPHENE. [Suspect]
     Active Substance: PROPOXYPHENE
     Dosage: UNK
  4. HYDROXYZINE PAMOATE. [Suspect]
     Active Substance: HYDROXYZINE PAMOATE
     Dosage: 13 (50 MG) ^TABLETS^ WERE TAKEN OVER 3 DAYS
  5. FLUOXETINE HCL [Suspect]
     Active Substance: FLUOXETINE HYDROCHLORIDE
     Dosage: UNK
  6. ACETAMINOPHEN. [Concomitant]
     Active Substance: ACETAMINOPHEN
     Dosage: UNK

REACTIONS (3)
  - Toxicity to various agents [Fatal]
  - Pneumonia aspiration [Fatal]
  - Completed suicide [Fatal]
